FAERS Safety Report 11171848 (Version 2)
Quarter: 2015Q2

REPORT INFORMATION
  Report Type: Spontaneous
  Country: JP (occurrence: JP)
  Receive Date: 20150608
  Receipt Date: 20150609
  Transmission Date: 20150821
  Serious: Yes (Other)
  Sender: FDA-Public Use
  Company Number: JP-PFIZER INC-2015131349

PATIENT
  Age: 61 Year
  Sex: Female
  Weight: 50 kg

DRUGS (6)
  1. LYRICA [Suspect]
     Active Substance: PREGABALIN
     Dosage: 25 MG, 1X/DAY
     Route: 048
     Dates: start: 201503, end: 201504
  2. VALSARTAN. [Concomitant]
     Active Substance: VALSARTAN
     Dosage: 40 MG, DAILY
     Route: 048
  3. TENORMIN [Concomitant]
     Active Substance: ATENOLOL
     Dosage: 50 MG, DAILY
     Route: 048
  4. NEUROTROPIN [Concomitant]
     Active Substance: NEUROTROPIN
     Dosage: UNK, 2X/DAY
     Route: 048
     Dates: start: 201503
  5. TENORMIN [Concomitant]
     Active Substance: ATENOLOL
     Dosage: 25 MG, DAILY
     Route: 048
  6. VALSARTAN. [Concomitant]
     Active Substance: VALSARTAN
     Dosage: 80 MG, DAILY
     Route: 048

REACTIONS (2)
  - Arrhythmia [Unknown]
  - Condition aggravated [Unknown]

NARRATIVE: CASE EVENT DATE: 201504
